FAERS Safety Report 14652214 (Version 2)
Quarter: 2018Q2

REPORT INFORMATION
  Report Type: Spontaneous
  Country: NL (occurrence: NL)
  Receive Date: 20180318
  Receipt Date: 20180604
  Transmission Date: 20180711
  Serious: Yes (Hospitalization)
  Sender: FDA-Public Use
  Company Number: PHHY2016NL186207

PATIENT
  Age: 69 Year
  Sex: Male
  Weight: 75 kg

DRUGS (15)
  1. ROACTEMRA [Suspect]
     Active Substance: TOCILIZUMAB
     Indication: RHEUMATOID ARTHRITIS
     Dosage: 8 MG/KG, Q4W
     Route: 042
     Dates: start: 20120327
  2. ROACTEMRA [Suspect]
     Active Substance: TOCILIZUMAB
     Dosage: 600 MG, QMO
     Route: 042
     Dates: start: 20160217
  3. ROACTEMRA [Suspect]
     Active Substance: TOCILIZUMAB
     Dosage: 600 MG, QMO
     Route: 042
     Dates: start: 20160315
  4. CELECOXIB. [Suspect]
     Active Substance: CELECOXIB
     Indication: RHEUMATOID ARTHRITIS
     Dosage: 400 MG, QD
     Route: 048
     Dates: start: 20130226
  5. ROACTEMRA [Suspect]
     Active Substance: TOCILIZUMAB
     Dosage: 600 MG, QMO
     Route: 042
     Dates: start: 20130731
  6. ACETAMINOPHEN. [Suspect]
     Active Substance: ACETAMINOPHEN
     Indication: RHEUMATOID ARTHRITIS
     Dosage: 3000 MG, QD
     Route: 048
     Dates: start: 20130226
  7. ROACTEMRA [Suspect]
     Active Substance: TOCILIZUMAB
     Dosage: 600 MG, QMO
     Route: 042
     Dates: start: 20151222
  8. ACETYLSALICYLIC ACID [Concomitant]
     Active Substance: ASPIRIN
     Indication: MYOCARDIAL INFARCTION
     Dosage: 80 MG, QD
     Route: 048
     Dates: start: 20051024
  9. ROACTEMRA [Suspect]
     Active Substance: TOCILIZUMAB
     Dosage: 600 MG, QMO
     Route: 042
     Dates: start: 20160119
  10. BISOPROLOL [Concomitant]
     Active Substance: BISOPROLOL
     Indication: HYPERTENSION
     Dosage: 5 MG, QD
     Route: 048
     Dates: start: 20051024
  11. PARACETAMOL [Concomitant]
     Active Substance: ACETAMINOPHEN
     Dosage: 1000 MG, UNK
     Route: 048
  12. ATORVASTATIN [Concomitant]
     Active Substance: ATORVASTATIN
     Indication: PRODUCT USED FOR UNKNOWN INDICATION
     Dosage: 20 MG, QD
     Route: 048
     Dates: start: 20051024
  13. ROACTEMRA [Suspect]
     Active Substance: TOCILIZUMAB
     Dosage: 300 MG, QMO
     Route: 042
     Dates: start: 20160305
  14. OMEPRAZOL [Concomitant]
     Active Substance: OMEPRAZOLE
     Indication: PROPHYLAXIS
     Dosage: 40 MG, QD
     Route: 048
     Dates: start: 20010521
  15. PARACETAMOL [Concomitant]
     Active Substance: ACETAMINOPHEN
     Indication: PRODUCT USED FOR UNKNOWN INDICATION
     Dosage: 3000 MG, QD
     Route: 048

REACTIONS (2)
  - Localised infection [Recovered/Resolved]
  - Wound infection [Recovered/Resolved]

NARRATIVE: CASE EVENT DATE: 20160415
